FAERS Safety Report 12247119 (Version 1)
Quarter: 2016Q2

REPORT INFORMATION
  Report Type: Spontaneous
  Country: DE (occurrence: DE)
  Receive Date: 20160407
  Receipt Date: 20160407
  Transmission Date: 20160815
  Serious: Yes (Other)
  Sender: FDA-Public Use
  Company Number: DE-MYLANLABS-2016M1011342

PATIENT

DRUGS (1)
  1. EPIPEN [Suspect]
     Active Substance: EPINEPHRINE
     Indication: PRODUCT USED FOR UNKNOWN INDICATION
     Dates: start: 20160309, end: 20160309

REACTIONS (7)
  - Accidental exposure to product [Recovered/Resolved]
  - Injection site pallor [Recovered/Resolved]
  - Needle issue [Recovered/Resolved]
  - Skin injury [Recovered/Resolved]
  - Injection site hypoaesthesia [Recovering/Resolving]
  - Expired product administered [Recovered/Resolved]
  - Occupational exposure to product [Recovered/Resolved]

NARRATIVE: CASE EVENT DATE: 20160309
